FAERS Safety Report 24062646 (Version 1)
Quarter: 2024Q3

REPORT INFORMATION
  Report Type: Spontaneous
  Country: US (occurrence: US)
  Receive Date: 20240708
  Receipt Date: 20240708
  Transmission Date: 20241016
  Serious: No
  Sender: MERCK
  Company Number: US-009507513-2407USA002568

PATIENT
  Age: 73 Year
  Sex: Male

DRUGS (23)
  1. NOXAFIL [Suspect]
     Active Substance: POSACONAZOLE
     Dosage: UNK
     Route: 048
     Dates: start: 2024, end: 2024
  2. TACROLIMUS [Suspect]
     Active Substance: TACROLIMUS
     Dosage: UNK
  3. ACYCLOVIR [Concomitant]
     Active Substance: ACYCLOVIR
  4. CLOPIDOGREL [Concomitant]
     Active Substance: CLOPIDOGREL BISULFATE
  5. FLUDROCORTISONE [Concomitant]
     Active Substance: FLUDROCORTISONE
  6. MIDODRINE [Concomitant]
     Active Substance: MIDODRINE
  7. OMEPRAZOLE [Concomitant]
     Active Substance: OMEPRAZOLE
  8. PREDNISONE [Concomitant]
     Active Substance: PREDNISONE
  9. BACTRIM [Concomitant]
     Active Substance: SULFAMETHOXAZOLE\TRIMETHOPRIM
  10. ASPIRIN [Concomitant]
     Active Substance: ASPIRIN
  11. FOLIC ACID [Concomitant]
     Active Substance: FOLIC ACID
  12. MAGNESIUM OXIDE [Concomitant]
     Active Substance: MAGNESIUM OXIDE
  13. VITAMINS NOS [Concomitant]
     Active Substance: VITAMINS
  14. CHOLECALCIFEROL [Concomitant]
     Active Substance: CHOLECALCIFEROL
     Dosage: UNK, QD
  15. FENOFIBRATE [Concomitant]
     Active Substance: FENOFIBRATE
  16. VENLAFAXINE [Concomitant]
     Active Substance: VENLAFAXINE HYDROCHLORIDE
  17. MONTELUKAST SODIUM [Concomitant]
     Active Substance: MONTELUKAST SODIUM
  18. ROSUVASTATIN [Concomitant]
     Active Substance: ROSUVASTATIN
  19. FINASTERIDE [Concomitant]
     Active Substance: FINASTERIDE
  20. TAMSULOSIN [Concomitant]
     Active Substance: TAMSULOSIN
  21. FERROUS SULFATE [Concomitant]
     Active Substance: FERROUS SULFATE
  22. SEPTINOR [Concomitant]
  23. PREVYMIS [Concomitant]
     Active Substance: LETERMOVIR
     Indication: Antiviral prophylaxis
     Dosage: 480 MILLIGRAM, QD

REACTIONS (2)
  - Labelled drug-drug interaction issue [Unknown]
  - No adverse event [Unknown]
